FAERS Safety Report 15763536 (Version 3)
Quarter: 2019Q2

REPORT INFORMATION
  Report Type: Report from Study
  Country: CA (occurrence: CA)
  Receive Date: 20181227
  Receipt Date: 20190417
  Transmission Date: 20190711
  Serious: Yes (Other)
  Sender: FDA-Public Use
  Company Number: CA-AMGEN-CANCT2018185506

PATIENT
  Age: 68 Year
  Sex: Female

DRUGS (1)
  1. AIMOVIG [Suspect]
     Active Substance: ERENUMAB-AOOE
     Indication: MIGRAINE
     Dosage: UNK
     Route: 065
     Dates: start: 20181219

REACTIONS (6)
  - Injection site bruising [Unknown]
  - Injection site rash [Unknown]
  - Injection site swelling [Unknown]
  - Urinary retention [Unknown]
  - Injection site erythema [Unknown]
  - Micturition urgency [Unknown]
